FAERS Safety Report 21963092 (Version 1)
Quarter: 2023Q1

REPORT INFORMATION
  Report Type: Report from Study
  Country: US (occurrence: US)
  Receive Date: 20230207
  Receipt Date: 20230207
  Transmission Date: 20230418
  Serious: No
  Sender: FDA-Public Use
  Company Number: US-AMRYT PHARMACEUTICALS DAC-AEGR006162

PATIENT
  Age: 6 Year
  Sex: Female
  Weight: 7 kg

DRUGS (8)
  1. METRELEPTIN [Suspect]
     Active Substance: METRELEPTIN
     Indication: Congenital generalised lipodystrophy
     Dosage: 0.08 MILLIMITER/36 MILIGRAM, QD
     Route: 058
     Dates: start: 20161114, end: 20180330
  2. METRELEPTIN [Suspect]
     Active Substance: METRELEPTIN
     Dosage: 0.48 MILLIGRAM, QD
     Route: 058
     Dates: start: 20180401, end: 20181118
  3. METRELEPTIN [Suspect]
     Active Substance: METRELEPTIN
     Dosage: 0.055 MILLIGRAM/KILOGRAM, QD
     Route: 058
     Dates: start: 20181119, end: 20200513
  4. METRELEPTIN [Suspect]
     Active Substance: METRELEPTIN
     Dosage: 0.7 MILLIGRAM, QD
     Route: 058
     Dates: start: 20200514, end: 20200630
  5. METRELEPTIN [Suspect]
     Active Substance: METRELEPTIN
     Dosage: 0.8 MILLIGRAM, QD
     Route: 058
     Dates: start: 20200630, end: 20201229
  6. METRELEPTIN [Suspect]
     Active Substance: METRELEPTIN
     Dosage: 0.9 MILLIGRAM, QD
     Route: 058
     Dates: start: 20201230, end: 20210629
  7. METRELEPTIN [Suspect]
     Active Substance: METRELEPTIN
     Dosage: 0.05 MILLIGRAM/KILOGRAM, QD
     Route: 058
     Dates: start: 20210630, end: 20221109
  8. METRELEPTIN [Suspect]
     Active Substance: METRELEPTIN
     Dosage: 0.04 MILLIGRAM/KILOGRAM/(0.8 MG), QD
     Route: 058
     Dates: start: 20221110

REACTIONS (1)
  - COVID-19 [Recovered/Resolved]

NARRATIVE: CASE EVENT DATE: 20221110
